FAERS Safety Report 7964181-5 (Version None)
Quarter: 2011Q4

REPORT INFORMATION
  Report Type: 
  Country: None (occurrence: None)
  Receive Date: 20111121
  Receipt Date: 20110728
  Transmission Date: 20120403
  Serious: No
  Sender: FDA-Public Use
  Company Number: 1000022543

PATIENT
  Age: 51 Year
  Sex: Female

DRUGS (11)
  1. ULTRAM (TRAMADOL HYDROCHLORIDE)(TRAMADOL [Concomitant]
  2. ULTRAM (TRAMADOL HYDROCHLORIDE)(TRAMADOL HYDROCHLORIDE) [Concomitant]
  3. CLONIDINE [Concomitant]
  4. AMBIEN [Concomitant]
  5. IMITREX (SUMATRIPTAN)(SUMATRIPTAN) [Concomitant]
  6. LEVSIN (HYOSCYAMINE SULFATE)(HYOSCYAMINE SULFATE) [Concomitant]
  7. COREG (CARVEDILOL)(CARVEDILOL) [Concomitant]
  8. CELEBREX [Concomitant]
  9. FLEXERIL (CYCLOBENZAPRINE)(CYCLOBENZAPRINE) [Concomitant]
  10. VIIBRYD [Suspect]
     Indication: DEPRESSION
     Dosage: 10 MG (10 MG, 1 IN 1 D),ORAL
     Route: 048
     Dates: start: 20110726
  11. KLONOPIN [Concomitant]

REACTIONS (3)
  - PAIN IN EXTREMITY [None]
  - BLOOD PRESSURE INCREASED [None]
  - NAUSEA [None]
